FAERS Safety Report 6971011-7 (Version None)
Quarter: 2010Q3

REPORT INFORMATION
  Report Type: 
  Country: None (occurrence: None)
  Receive Date: 20100908
  Receipt Date: 20100901
  Transmission Date: 20110219
  Serious: Yes (Death)
  Sender: FDA-Public Use
  Company Number: AU-ROCHE-725037

PATIENT
  Age: 58 Year
  Sex: Male
  Weight: 157.3 kg

DRUGS (5)
  1. TAMIFLU [Suspect]
     Indication: INFLUENZA
     Dosage: FORM: INFUSION
     Route: 042
  2. PIPERACILLIN AND TAZOBACTAM [Concomitant]
     Route: 042
     Dates: start: 20100813, end: 20100817
  3. CIPROFLOXACIN [Concomitant]
     Dosage: DRUG NAME: CIPROFLOXOCIN
     Route: 042
     Dates: start: 20100813, end: 20100817
  4. MOXIFLOXACIN [Concomitant]
     Dosage: DRUG NAME: MOXIFLOXOCIN
     Route: 042
     Dates: start: 20100817
  5. VORICONAZOLE [Concomitant]
     Route: 042
     Dates: start: 20100819

REACTIONS (1)
  - DEATH [None]
